FAERS Safety Report 10332834 (Version 2)
Quarter: 2014Q4

REPORT INFORMATION
  Report Type: Spontaneous
  Country: IT (occurrence: IT)
  Receive Date: 20140722
  Receipt Date: 20141107
  Transmission Date: 20150528
  Serious: Yes (Hospitalization)
  Sender: FDA-Public Use
  Company Number: IT-ABBVIE-14P-083-1263016-00

PATIENT
  Age: 59 Year
  Sex: Male

DRUGS (5)
  1. MACLADIN [Suspect]
     Active Substance: CLARITHROMYCIN
     Indication: INFLUENZA
     Route: 048
     Dates: start: 20140424, end: 20140503
  2. NIMESULIDE [Suspect]
     Active Substance: NIMESULIDE
     Indication: TOOTHACHE
     Route: 048
     Dates: start: 20140501, end: 20140501
  3. OKI [Suspect]
     Active Substance: KETOPROFEN LYSINE
     Indication: INFLUENZA
     Route: 048
     Dates: start: 20140424, end: 20140502
  4. TACHIPIRINA [Suspect]
     Active Substance: ACETAMINOPHEN
     Indication: PYREXIA
     Route: 048
     Dates: start: 20140424, end: 20140502
  5. LOBIVON [Concomitant]
     Active Substance: NEBIVOLOL HYDROCHLORIDE
     Indication: PRODUCT USED FOR UNKNOWN INDICATION
     Route: 065

REACTIONS (4)
  - Face oedema [Recovering/Resolving]
  - Conjunctival hyperaemia [Recovering/Resolving]
  - Gingival erythema [Recovering/Resolving]
  - Adverse drug reaction [Recovering/Resolving]

NARRATIVE: CASE EVENT DATE: 20140503
